FAERS Safety Report 10685552 (Version 1)
Quarter: 2014Q4

REPORT INFORMATION
  Report Type: Spontaneous
  Country: US (occurrence: None)
  Receive Date: 20141229
  Receipt Date: 20141229
  Transmission Date: 20150529
  Serious: Yes (Other)
  Sender: FDA-Public Use
  Company Number: HA14-451-AE (PT. # 2)

PATIENT

DRUGS (1)
  1. AMLODIPINE BESYLATE. [Suspect]
     Active Substance: AMLODIPINE BESYLATE
     Route: 048

REACTIONS (10)
  - Dyspnoea [None]
  - Vertigo [None]
  - Drug interaction [None]
  - Epistaxis [None]
  - Tinnitus [None]
  - Sinus disorder [None]
  - Anxiety [None]
  - Body mass index increased [None]
  - Pyogenic granuloma [None]
  - Respiratory distress [None]
